FAERS Safety Report 7383153-5 (Version None)
Quarter: 2011Q1

REPORT INFORMATION
  Report Type: 
  Country: None (occurrence: None)
  Receive Date: 20110330
  Receipt Date: 20110325
  Transmission Date: 20110831
  Serious: Yes (Hospitalization)
  Sender: FDA-Public Use
  Company Number: SE-TEVA-273179ISR

PATIENT
  Sex: Male

DRUGS (2)
  1. DOXYCYCLINE [Suspect]
     Indication: PYREXIA
     Route: 048
     Dates: start: 20110119, end: 20110122
  2. DOXYCYCLINE [Suspect]
     Indication: UPPER RESPIRATORY TRACT INFECTION

REACTIONS (1)
  - DIPLOPIA [None]
